FAERS Safety Report 5771645-1 (Version None)
Quarter: 2008Q2

REPORT INFORMATION
  Report Type: 
  Country: None (occurrence: None)
  Receive Date: 20080613
  Receipt Date: 20080609
  Transmission Date: 20081010
  Serious: Yes (Other)
  Sender: FDA-Public Use
  Company Number: CA-ASTRAZENECA-2008UW11646

PATIENT
  Age: 83 Year
  Sex: Male

DRUGS (4)
  1. CASODEX [Suspect]
     Indication: PROSTATE CANCER
     Route: 048
     Dates: start: 20080604, end: 20080606
  2. RAMIPRIL [Concomitant]
  3. INDAPAMIDE [Concomitant]
  4. ATORVASTATIN [Concomitant]

REACTIONS (2)
  - COLD SWEAT [None]
  - DIZZINESS [None]
